FAERS Safety Report 24913975 (Version 1)
Quarter: 2025Q1

REPORT INFORMATION
  Report Type: Spontaneous
  Country: IN (occurrence: IN)
  Receive Date: 20250202
  Receipt Date: 20250202
  Transmission Date: 20250408
  Serious: Yes (Death)
  Sender: ROCHE
  Company Number: IN-ROCHE-10000135045

PATIENT
  Age: 63 Year
  Sex: Female

DRUGS (1)
  1. TECENTRIQ [Suspect]
     Active Substance: ATEZOLIZUMAB
     Indication: Neuroendocrine carcinoma metastatic
     Route: 040
     Dates: start: 20241026

REACTIONS (4)
  - Off label use [Unknown]
  - Neoplasm malignant [Fatal]
  - Platelet count abnormal [Fatal]
  - Blood potassium decreased [Fatal]

NARRATIVE: CASE EVENT DATE: 20241201
